FAERS Safety Report 8054109-4 (Version None)
Quarter: 2012Q1

REPORT INFORMATION
  Report Type: 
  Country: None (occurrence: None)
  Receive Date: 20120118
  Receipt Date: 20120112
  Transmission Date: 20120608
  Serious: Yes (Other)
  Sender: FDA-Public Use
  Company Number: US-ABBOTT-12P-163-0892835-00

PATIENT
  Sex: Female
  Weight: 127.57 kg

DRUGS (3)
  1. HUMIRA [Suspect]
     Indication: PSORIATIC ARTHROPATHY
     Route: 058
     Dates: start: 20101227, end: 20110824
  2. HUMIRA [Suspect]
     Route: 058
     Dates: start: 20111228
  3. MULITPLE UNLISTED MEDICATIONS [Concomitant]
     Indication: PRODUCT USED FOR UNKNOWN INDICATION

REACTIONS (3)
  - ARTHRITIS [None]
  - ARTHRITIS INFECTIVE [None]
  - CELLULITIS [None]
